FAERS Safety Report 10072258 (Version 1)
Quarter: 2014Q2

REPORT INFORMATION
  Report Type: Other
  Country: GB (occurrence: GB)
  Receive Date: 20140411
  Receipt Date: 20140411
  Transmission Date: 20141212
  Serious: Yes (Disabling)
  Sender: FDA-Public Use
  Company Number: GB-SUN PHARMACEUTICAL INDUSTRIES LTD-2014SUN00757

PATIENT
  Age: 81 Year
  Sex: Male

DRUGS (2)
  1. GEMCITABINE INJECTION [Suspect]
     Indication: PRODUCT USED FOR UNKNOWN INDICATION
     Dosage: 8 WEEKLY DOSES, 3 WEEKS ON 1 WEEK OFF
     Route: 065
     Dates: end: 20140313
  2. GEMCITABINE INJECTION [Suspect]
     Dosage: LAST YEAR SINGLE DOSE
     Route: 065
     Dates: start: 2013

REACTIONS (1)
  - Visual acuity reduced [Unknown]
